FAERS Safety Report 16331617 (Version 1)
Quarter: 2019Q2

REPORT INFORMATION
  Report Type: Spontaneous
  Country: US (occurrence: US)
  Receive Date: 20190520
  Receipt Date: 20190520
  Transmission Date: 20190711
  Serious: No
  Sender: FDA-Public Use
  Company Number: US-BAYER-2019-098665

PATIENT
  Age: 65 Year
  Sex: Male

DRUGS (1)
  1. BETASERON [Suspect]
     Active Substance: INTERFERON BETA-1B
     Indication: MULTIPLE SCLEROSIS
     Dosage: 0.25 MG
     Route: 058

REACTIONS (6)
  - Decubitus ulcer [Not Recovered/Not Resolved]
  - Eye disorder [None]
  - Injection site rash [None]
  - Hypoaesthesia [None]
  - Muscle spasms [None]
  - Mobility decreased [None]

NARRATIVE: CASE EVENT DATE: 201905
